FAERS Safety Report 18550644 (Version 5)
Quarter: 2022Q2

REPORT INFORMATION
  Report Type: Spontaneous
  Country: US (occurrence: US)
  Receive Date: 20201126
  Receipt Date: 20220622
  Transmission Date: 20220721
  Serious: No
  Sender: FDA-Public Use
  Company Number: US-PFIZER INC-2020463114

PATIENT
  Age: 88 Year
  Sex: Male

DRUGS (1)
  1. XALATAN [Suspect]
     Active Substance: LATANOPROST
     Indication: Glaucoma
     Dosage: UNK

REACTIONS (4)
  - Drug ineffective [Unknown]
  - Blood pressure increased [Unknown]
  - Eye pain [Unknown]
  - Intraocular pressure increased [Unknown]
